FAERS Safety Report 9740063 (Version 1)
Quarter: 2013Q4

REPORT INFORMATION
  Report Type: Spontaneous
  Country: US (occurrence: US)
  Receive Date: 20131209
  Receipt Date: 20131209
  Transmission Date: 20140711
  Serious: Yes (Hospitalization)
  Sender: FDA-Public Use
  Company Number: US-GLAXOSMITHKLINE-A1036136A

PATIENT
  Age: 60 Year
  Sex: Female

DRUGS (7)
  1. ARIXTRA [Suspect]
     Indication: THROMBOSIS PROPHYLAXIS
     Dosage: 7.5MG PER DAY
     Route: 058
     Dates: start: 20130103
  2. PLAVIX [Concomitant]
  3. VERAPAMIL [Concomitant]
  4. LASIX [Concomitant]
  5. POTASSIUM [Concomitant]
  6. FELDENE [Concomitant]
  7. XANAX [Concomitant]

REACTIONS (5)
  - Investigation [Not Recovered/Not Resolved]
  - Pruritus [Unknown]
  - Skin haemorrhage [Unknown]
  - Injection site reaction [Unknown]
  - Urticaria [Unknown]
